FAERS Safety Report 9519520 (Version 1)
Quarter: 2013Q3

REPORT INFORMATION
  Report Type: Spontaneous
  Country: US (occurrence: US)
  Receive Date: 20130912
  Receipt Date: 20130912
  Transmission Date: 20140515
  Serious: No
  Sender: FDA-Public Use
  Company Number: US-009507513-1309USA004883

PATIENT
  Sex: Female

DRUGS (2)
  1. DULERA [Suspect]
     Dosage: UNKNOWN
     Route: 055
  2. SPIRIVA [Concomitant]
     Dosage: UNKNOWN

REACTIONS (1)
  - Dysphonia [Unknown]
